FAERS Safety Report 4768017-5 (Version None)
Quarter: 2005Q3

REPORT INFORMATION
  Report Type: 
  Country: None (occurrence: None)
  Receive Date: 20050913
  Receipt Date: 20050831
  Transmission Date: 20060218
  Serious: Yes (Other)
  Sender: FDA-Public Use
  Company Number: 2005122994

PATIENT
  Age: 59 Year
  Sex: Female
  Weight: 68.0396 kg

DRUGS (3)
  1. ZITHROMAX [Suspect]
     Indication: PERTUSSIS
     Dosage: ORAL
     Route: 048
     Dates: start: 20050829, end: 20050830
  2. PREMARIN [Concomitant]
  3. CLARINEX [Concomitant]

REACTIONS (3)
  - DYSPHONIA [None]
  - LUNG DISORDER [None]
  - PRURITUS GENERALISED [None]
